FAERS Safety Report 7411989-0 (Version None)
Quarter: 2011Q2

REPORT INFORMATION
  Report Type: 
  Country: None (occurrence: None)
  Receive Date: 20110413
  Receipt Date: 20090930
  Transmission Date: 20111010
  Serious: Yes (Hospitalization, Other)
  Sender: FDA-Public Use
  Company Number: US-BAYER-200934518NA

PATIENT
  Age: 71 Year
  Sex: Male
  Weight: 77 kg

DRUGS (23)
  1. LORATADINE [Concomitant]
     Dosage: 10 MG, UNK
     Route: 048
  2. PROCARDIA [Concomitant]
     Dosage: 80 MG, QD
     Route: 048
  3. COUMADIN [Concomitant]
     Route: 048
  4. TRUSOPT [Concomitant]
     Route: 047
  5. OMNIPAQUE 140 [Concomitant]
     Dosage: 350 UNK
     Dates: start: 20040924
  6. OMEGA 3 FATTY ACIDS [Concomitant]
     Dosage: UNK UNK, QD
     Route: 048
  7. ALBUTEROL [Concomitant]
  8. FLONASE [Concomitant]
  9. TRASYLOL [Suspect]
     Indication: AORTIC VALVE REPLACEMENT
  10. OMNISCAN [Concomitant]
     Dosage: 20 ML, UNK
     Dates: start: 20040926
  11. ACETYLSALICYLIC ACID SRT [Concomitant]
     Dosage: 81 MG, UNK
     Route: 048
  12. DIOVAN [Concomitant]
     Dosage: 80 MG, QD
     Route: 048
  13. SEREVENT [Concomitant]
  14. ALPHAGAN [Concomitant]
     Route: 047
  15. HEPARIN [Concomitant]
     Route: 048
  16. AEROBID [Concomitant]
  17. XALATAN [Concomitant]
     Route: 047
  18. VANCOMYCIN [Concomitant]
     Dosage: 1 G, UNK
     Route: 042
     Dates: start: 20040927, end: 20040927
  19. ANCEF [Concomitant]
     Dosage: 1 G, UNK
     Route: 042
     Dates: start: 20040927, end: 20040927
  20. TRASYLOL [Suspect]
     Indication: CORONARY ARTERY BYPASS
     Dosage: UNK
     Route: 042
     Dates: start: 20040927, end: 20040927
  21. ATROVENT [Concomitant]
  22. VISIPAQUE [IODINE,IODIXANOL] [Concomitant]
     Dosage: 320 UNK
     Dates: start: 20040924
  23. ACIPHEX [Concomitant]
     Dosage: 20 MG, QD

REACTIONS (10)
  - EMOTIONAL DISTRESS [None]
  - PAIN [None]
  - ANXIETY [None]
  - RENAL FAILURE [None]
  - FEAR [None]
  - INJURY [None]
  - STRESS [None]
  - UNEVALUABLE EVENT [None]
  - RENAL INJURY [None]
  - RENAL IMPAIRMENT [None]
